FAERS Safety Report 20316520 (Version 1)
Quarter: 2022Q1

REPORT INFORMATION
  Report Type: Report from Study
  Country: NL (occurrence: None)
  Receive Date: 20220110
  Receipt Date: 20220110
  Transmission Date: 20220423
  Serious: Yes (Other)
  Sender: FDA-Public Use
  Company Number: NL-ROCHE-2995022

PATIENT
  Age: 51 Year
  Sex: Female

DRUGS (2)
  1. COBIMETINIB [Suspect]
     Active Substance: COBIMETINIB
     Indication: Non-small cell lung cancer metastatic
     Dosage: ON THE SAME DATE, SHE RECEIVED MOST RECENT DOSE OF COBIMETINIB
     Route: 048
     Dates: start: 20210803
  2. VEMURAFENIB [Suspect]
     Active Substance: VEMURAFENIB
     Indication: Non-small cell lung cancer metastatic
     Dosage: ON THE SAME DATE, SHE RECEIVED MOST RECENT DOSE OF VEMURAFENIB
     Route: 048
     Dates: start: 20210803

REACTIONS (1)
  - Ejection fraction decreased [Not Recovered/Not Resolved]

NARRATIVE: CASE EVENT DATE: 20210824
